FAERS Safety Report 6706010-3 (Version None)
Quarter: 2010Q2

REPORT INFORMATION
  Report Type: 
  Country: None (occurrence: None)
  Receive Date: 20100430
  Receipt Date: 20100430
  Transmission Date: 20101027
  Serious: Yes (Hospitalization)
  Sender: FDA-Public Use
  Company Number: None

PATIENT
  Sex: Male
  Weight: 90.6 kg

DRUGS (4)
  1. CETUXIMAB [Suspect]
     Indication: TONGUE NEOPLASM MALIGNANT STAGE UNSPECIFIED
     Dosage: 555MG WEEKLY IV
     Route: 042
     Dates: start: 20100419
  2. CISPLATIN [Suspect]
     Indication: TONGUE NEOPLASM MALIGNANT STAGE UNSPECIFIED
     Dosage: 222MG Q21DX2 IV
     Route: 042
     Dates: start: 20100405
  3. FENTANYL [Concomitant]
  4. OXYCODONE [Concomitant]

REACTIONS (6)
  - BLOOD CREATININE INCREASED [None]
  - CARDIAC ARREST [None]
  - INCORRECT DOSE ADMINISTERED [None]
  - LIVER FUNCTION TEST ABNORMAL [None]
  - MENTAL STATUS CHANGES [None]
  - RESPIRATORY ARREST [None]
